FAERS Safety Report 9478769 (Version 1)
Quarter: 2013Q3

REPORT INFORMATION
  Report Type: Spontaneous
  Country: US (occurrence: US)
  Receive Date: 20130827
  Receipt Date: 20130827
  Transmission Date: 20140515
  Serious: No
  Sender: FDA-Public Use
  Company Number: US-ROXANE LABORATORIES, INC.-2013-RO-01447RO

PATIENT
  Age: 75 Year
  Sex: Female

DRUGS (1)
  1. CODEINE SULFATE [Suspect]

REACTIONS (2)
  - Dyspepsia [Unknown]
  - Sedation [Unknown]
